FAERS Safety Report 6340258-5 (Version None)
Quarter: 2009Q3

REPORT INFORMATION
  Report Type: 
  Country: None (occurrence: None)
  Receive Date: 20090902
  Receipt Date: 20090811
  Transmission Date: 20100115
  Serious: Yes (Other)
  Sender: FDA-Public Use
  Company Number: PHHY2008GB20019

PATIENT
  Age: 77 Year

DRUGS (5)
  1. VISUDYNE [Suspect]
     Indication: MACULAR DEGENERATION
     Dates: start: 20080401, end: 20080401
  2. ADCAL [Concomitant]
  3. EXEMESTANE [Concomitant]
  4. IBUPROFEN [Concomitant]
  5. ERGOTAMINE [Concomitant]

REACTIONS (2)
  - CATARACT NUCLEAR [None]
  - NIPPLE EXUDATE BLOODY [None]
